FAERS Safety Report 11317922 (Version 4)
Quarter: 2016Q2

REPORT INFORMATION
  Report Type: Report from Study
  Country: US (occurrence: US)
  Receive Date: 20150728
  Receipt Date: 20160414
  Transmission Date: 20160815
  Serious: Yes (Other)
  Sender: FDA-Public Use
  Company Number: US-SA-2014SA015277

PATIENT
  Age: 49 Year
  Sex: Male

DRUGS (2)
  1. AUBAGIO [Suspect]
     Active Substance: TERIFLUNOMIDE
     Indication: MULTIPLE SCLEROSIS
     Route: 048
     Dates: start: 20140101
  2. BOTOX [Concomitant]
     Active Substance: ONABOTULINUMTOXINA

REACTIONS (26)
  - Mood swings [Not Recovered/Not Resolved]
  - Gait disturbance [Unknown]
  - Blister [Not Recovered/Not Resolved]
  - Nausea [Recovering/Resolving]
  - Hypertension [Unknown]
  - Fatigue [Unknown]
  - Headache [Unknown]
  - Limb discomfort [Not Recovered/Not Resolved]
  - Pain [Unknown]
  - Diarrhoea [Recovering/Resolving]
  - Mental impairment [Unknown]
  - Hypoaesthesia [Unknown]
  - Pain [Unknown]
  - Musculoskeletal stiffness [Recovering/Resolving]
  - Dyspepsia [Not Recovered/Not Resolved]
  - Paraesthesia [Unknown]
  - Memory impairment [Unknown]
  - Inner ear disorder [Not Recovered/Not Resolved]
  - Hypoaesthesia [Recovering/Resolving]
  - Muscle spasms [Not Recovered/Not Resolved]
  - Immune system disorder [Not Recovered/Not Resolved]
  - Onychomadesis [Not Recovered/Not Resolved]
  - Pain in extremity [Recovered/Resolved]
  - Insomnia [Unknown]
  - Vertigo [Unknown]
  - Skin ulcer [Not Recovered/Not Resolved]

NARRATIVE: CASE EVENT DATE: 201312
